FAERS Safety Report 7122804-7 (Version None)
Quarter: 2010Q4

REPORT INFORMATION
  Report Type: 
  Country: None (occurrence: None)
  Receive Date: 20101124
  Receipt Date: 20101117
  Transmission Date: 20110411
  Serious: Yes (Hospitalization, Other)
  Sender: FDA-Public Use
  Company Number: US-ABBOTT-10P-163-0686162-00

PATIENT
  Sex: Male
  Weight: 156.63 kg

DRUGS (6)
  1. HUMIRA [Suspect]
     Indication: PSORIASIS
     Route: 058
     Dates: start: 20090702, end: 20100101
  2. HUMIRA [Suspect]
     Indication: PSORIATIC ARTHROPATHY
     Route: 058
     Dates: start: 20101105
  3. IBUPROFEN [Suspect]
     Indication: PSORIATIC ARTHROPATHY
     Dosage: ONCE TO TWICE DAILY
     Route: 048
     Dates: start: 20090701, end: 20100102
  4. IBUPROFEN [Suspect]
     Indication: PAIN
  5. IBUPROFEN [Suspect]
     Indication: INFLAMMATION
  6. MULTIPLE UNLISTED MEDICATIONS [Concomitant]
     Indication: PRODUCT USED FOR UNKNOWN INDICATION

REACTIONS (8)
  - APPARENT DEATH [None]
  - CHROMATURIA [None]
  - DYSPNOEA [None]
  - FLUID RETENTION [None]
  - PSORIASIS [None]
  - RENAL FAILURE [None]
  - RESPIRATORY DISORDER [None]
  - SKIN TIGHTNESS [None]
